FAERS Safety Report 4467509-6 (Version None)
Quarter: 2004Q4

REPORT INFORMATION
  Report Type: 
  Country: None (occurrence: None)
  Receive Date: 20041006
  Receipt Date: 20041001
  Transmission Date: 20050328
  Serious: Yes (Life-Threatening, Hospitalization)
  Sender: FDA-Public Use
  Company Number: US-MERCK-0410USA00163

PATIENT
  Age: 57 Year
  Sex: Female

DRUGS (5)
  1. [THERAPY UNSPECIFIED] [Concomitant]
     Route: 065
  2. ASPIRIN [Concomitant]
     Route: 065
  3. CALCIUM (UNSPECIFIED) [Concomitant]
     Route: 065
  4. NEXIUM [Concomitant]
     Route: 065
  5. VIOXX [Suspect]
     Indication: OSTEOARTHRITIS
     Route: 048
     Dates: start: 20010101, end: 20040930

REACTIONS (6)
  - AMNESIA [None]
  - CARDIAC DISORDER [None]
  - CHEST PAIN [None]
  - MYOCARDIAL INFARCTION [None]
  - TRIPLE VESSEL BYPASS GRAFT [None]
  - WEIGHT DECREASED [None]
